FAERS Safety Report 13153292 (Version 1)
Quarter: 2017Q1

REPORT INFORMATION
  Report Type: Spontaneous
  Country: US (occurrence: US)
  Receive Date: 20170121
  Receipt Date: 20170121
  Transmission Date: 20170428
  Serious: No
  Sender: FDA-Public Use
  Company Number: None

PATIENT
  Age: 26 Year
  Sex: Female
  Weight: 104.85 kg

DRUGS (1)
  1. NITROFURANTOIN MONO [Suspect]
     Active Substance: NITROFURANTOIN
     Indication: CYSTITIS
     Dosage: ?          QUANTITY:10 CAPSULE(S);?
     Route: 048

REACTIONS (4)
  - Fatigue [None]
  - Bladder disorder [None]
  - Depression [None]
  - Hyperhidrosis [None]

NARRATIVE: CASE EVENT DATE: 20170120
